FAERS Safety Report 4727514-9 (Version None)
Quarter: 2005Q3

REPORT INFORMATION
  Report Type: 
  Country: None (occurrence: None)
  Receive Date: 20050727
  Receipt Date: 20050727
  Transmission Date: 20060218
  Serious: Yes (Other)
  Sender: FDA-Public Use
  Company Number: None

PATIENT
  Age: 71 Year
  Sex: Female
  Weight: 61.2356 kg

DRUGS (1)
  1. HYDROXYZINE HCL [Suspect]
     Indication: PRURITUS
     Dosage: ONE TABLET IN THE MORNING AND TWO TABLETS AT NIGHT
     Dates: start: 20050713, end: 20050725

REACTIONS (3)
  - CONDITION AGGRAVATED [None]
  - PRURITUS [None]
  - THERAPEUTIC RESPONSE UNEXPECTED WITH DRUG SUBSTITUTION [None]
